FAERS Safety Report 17637251 (Version 1)
Quarter: 2020Q2

REPORT INFORMATION
  Report Type: Spontaneous
  Country: US (occurrence: US)
  Receive Date: 20200407
  Receipt Date: 20200407
  Transmission Date: 20200713
  Serious: Yes (Hospitalization)
  Sender: FDA-Public Use
  Company Number: None

PATIENT
  Age: 15 Year
  Sex: Male
  Weight: 65.9 kg

DRUGS (4)
  1. METHOTREXATE 150MG [Suspect]
     Active Substance: METHOTREXATE
  2. VINCRISTINE SULFATE 2MG [Suspect]
     Active Substance: VINCRISTINE SULFATE
  3. DEXAMETHASONE 55MG [Suspect]
     Active Substance: DEXAMETHASONE
  4. MERCAPTOPURINE 4800MG [Suspect]
     Active Substance: MERCAPTOPURINE
     Dates: end: 20180709

REACTIONS (8)
  - Jaundice [None]
  - Therapy cessation [None]
  - Retroperitoneal oedema [None]
  - Hepatitis [None]
  - Ascites [None]
  - Venoocclusive disease [None]
  - Infection [None]
  - Abdominal pain [None]

NARRATIVE: CASE EVENT DATE: 20180716
